FAERS Safety Report 7512291-9 (Version None)
Quarter: 2011Q2

REPORT INFORMATION
  Report Type: 
  Country: None (occurrence: None)
  Receive Date: 20110525
  Receipt Date: 20110525
  Transmission Date: 20111010
  Serious: Yes (Hospitalization)
  Sender: FDA-Public Use
  Company Number: None

PATIENT
  Age: 58 Year
  Sex: Male
  Weight: 125.5 kg

DRUGS (2)
  1. DECITABINE [Suspect]
     Indication: MYELODYSPLASTIC SYNDROME
     Dosage: 0.2 MG/KG SQ ; 0.15MG/KG SQ
     Route: 058
     Dates: start: 20110102, end: 20110428
  2. DECITABINE [Suspect]
     Indication: MYELODYSPLASTIC SYNDROME
     Dosage: 0.2 MG/KG SQ ; 0.15MG/KG SQ
     Route: 058
     Dates: start: 20100913, end: 20101227

REACTIONS (3)
  - BACTERIAL INFECTION [None]
  - FURUNCLE [None]
  - SECRETION DISCHARGE [None]
